FAERS Safety Report 12828573 (Version 3)
Quarter: 2017Q2

REPORT INFORMATION
  Report Type: Spontaneous
  Country: US (occurrence: US)
  Receive Date: 20161007
  Receipt Date: 20170518
  Transmission Date: 20170830
  Serious: Yes (Other)
  Sender: FDA-Public Use
  Company Number: US-SA-2015SA158761

PATIENT
  Age: 62 Year
  Sex: Female

DRUGS (14)
  1. AUBAGIO [Suspect]
     Active Substance: TERIFLUNOMIDE
     Indication: MULTIPLE SCLEROSIS
     Route: 048
  2. OSCAL [Concomitant]
     Active Substance: CALCIUM CARBONATE
  3. PRIMIDONE. [Concomitant]
     Active Substance: PRIMIDONE
  4. VITAMIN D3 [Concomitant]
     Active Substance: CHOLECALCIFEROL
  5. ZOLPIDEM TARTRATE. [Concomitant]
     Active Substance: ZOLPIDEM TARTRATE
  6. ARTHROTEC [Concomitant]
     Active Substance: DICLOFENAC SODIUM\MISOPROSTOL
  7. ROBAXIN [Concomitant]
     Active Substance: METHOCARBAMOL
  8. VITAMIN B12 [Concomitant]
     Active Substance: CYANOCOBALAMIN
  9. LYRICA [Concomitant]
     Active Substance: PREGABALIN
  10. DOXYCYCLINE. [Concomitant]
     Active Substance: DOXYCYCLINE
  11. FLUOXETINE [Concomitant]
     Active Substance: FLUOXETINE HYDROCHLORIDE
  12. PROGESTERONE. [Concomitant]
     Active Substance: PROGESTERONE
  13. SIMVASTATIN. [Concomitant]
     Active Substance: SIMVASTATIN
  14. ALPRAZOLAM. [Concomitant]
     Active Substance: ALPRAZOLAM

REACTIONS (9)
  - Back disorder [Recovering/Resolving]
  - Joint injury [Unknown]
  - Balance disorder [Unknown]
  - Alopecia [Unknown]
  - Eye contusion [Unknown]
  - Contusion [Unknown]
  - Headache [Unknown]
  - Fall [Unknown]
  - Fatigue [Unknown]

NARRATIVE: CASE EVENT DATE: 201605
